FAERS Safety Report 14499508 (Version 1)
Quarter: 2018Q1

REPORT INFORMATION
  Report Type: Spontaneous
  Country: US (occurrence: US)
  Receive Date: 20180207
  Receipt Date: 20180207
  Transmission Date: 20180509
  Serious: No
  Sender: FDA-Public Use
  Company Number: US-PERRIGO-17US003101

PATIENT
  Age: 66 Year
  Sex: Female
  Weight: 86.17 kg

DRUGS (2)
  1. OTHER OPHTHALMOLOGICALS [Concomitant]
     Indication: GLAUCOMA
     Dosage: UNK
     Route: 065
     Dates: start: 2009
  2. CETIRIZINE HYDROCHLORIDE. [Suspect]
     Active Substance: CETIRIZINE HYDROCHLORIDE
     Indication: HYPERSENSITIVITY
     Dosage: 10 MG, QD
     Route: 048
     Dates: start: 20170324, end: 20170405

REACTIONS (2)
  - Drug effect incomplete [Unknown]
  - Drug administered to patient of inappropriate age [Recovered/Resolved]

NARRATIVE: CASE EVENT DATE: 20170324
